FAERS Safety Report 10768811 (Version 3)
Quarter: 2015Q2

REPORT INFORMATION
  Report Type: Report from Study
  Country: GB (occurrence: GB)
  Receive Date: 20150206
  Receipt Date: 20150515
  Transmission Date: 20150821
  Serious: Yes (Other)
  Sender: FDA-Public Use
  Company Number: GB-ROCHE-1531814

PATIENT
  Sex: Female
  Weight: 58.2 kg

DRUGS (4)
  1. CAPECITABINE. [Suspect]
     Active Substance: CAPECITABINE
     Indication: ADENOCARCINOMA GASTRIC
     Dosage: LAST DOSE: 22/SEP/2009
     Route: 048
     Dates: start: 20090720
  2. CISPLATIN. [Suspect]
     Active Substance: CISPLATIN
     Indication: ADENOCARCINOMA GASTRIC
     Dosage: LAST DOSE: 01/SEP/2009
     Route: 042
     Dates: start: 20090720
  3. EPIRUBICIN [Suspect]
     Active Substance: EPIRUBICIN
     Indication: ADENOCARCINOMA GASTRIC
     Dosage: LAST DOSE: 01/SEP/2009
     Route: 042
     Dates: start: 20090720
  4. BEVACIZUMAB [Suspect]
     Active Substance: BEVACIZUMAB
     Indication: ADENOCARCINOMA GASTRIC
     Dosage: LAST DOSE: 01/SEP/2009
     Route: 042
     Dates: start: 20090720

REACTIONS (1)
  - Anastomotic leak [Recovered/Resolved]

NARRATIVE: CASE EVENT DATE: 20091118
